FAERS Safety Report 9432681 (Version 1)
Quarter: 2013Q3

REPORT INFORMATION
  Report Type: Spontaneous
  Country: US (occurrence: US)
  Receive Date: 20130731
  Receipt Date: 20130731
  Transmission Date: 20140515
  Serious: Yes (Hospitalization)
  Sender: FDA-Public Use
  Company Number: US-DYAX CORP.-2013DX000141

PATIENT
  Age: 50 Year
  Sex: Male
  Weight: 127.12 kg

DRUGS (5)
  1. KALBITOR [Suspect]
     Indication: HEREDITARY ANGIOEDEMA
     Route: 058
     Dates: start: 20130718, end: 20130718
  2. KALBITOR [Suspect]
     Route: 058
     Dates: start: 20130722, end: 20130722
  3. ZOLOFT [Concomitant]
     Indication: DEPRESSION
     Route: 048
     Dates: start: 1996
  4. ZOLOFT [Concomitant]
     Indication: SLEEP DISORDER
  5. TRAZODONE [Concomitant]
     Indication: SLEEP DISORDER
     Route: 048
     Dates: start: 1996

REACTIONS (9)
  - Chest discomfort [Recovering/Resolving]
  - Chest pain [Recovering/Resolving]
  - Dyspnoea [Recovering/Resolving]
  - Sensation of foreign body [Recovering/Resolving]
  - Hereditary angioedema [Recovering/Resolving]
  - Somnolence [Recovering/Resolving]
  - Paraesthesia oral [Recovering/Resolving]
  - Feeling abnormal [Recovering/Resolving]
  - Depressed mood [Recovering/Resolving]
